FAERS Safety Report 17404038 (Version 1)
Quarter: 2020Q1

REPORT INFORMATION
  Report Type: Spontaneous
  Country: EG (occurrence: EG)
  Receive Date: 20200211
  Receipt Date: 20200211
  Transmission Date: 20200409
  Serious: Yes (Hospitalization, Other)
  Sender: FDA-Public Use
  Company Number: EG-VALIDUS PHARMACEUTICALS LLC-EG-2020VAL000099

PATIENT

DRUGS (5)
  1. OMEPRAZOLE. [Suspect]
     Active Substance: OMEPRAZOLE
     Indication: PRODUCT USED FOR UNKNOWN INDICATION
     Dosage: UNK
     Route: 065
  2. FUROSEMIDE. [Suspect]
     Active Substance: FUROSEMIDE
     Indication: CARDIAC FAILURE
     Dosage: UNK
     Route: 065
  3. DIGOXIN. [Suspect]
     Active Substance: DIGOXIN
     Indication: CARDIAC FAILURE
     Dosage: UNK
     Route: 065
  4. ACETYLSALICYLIC ACID [Suspect]
     Active Substance: ASPIRIN
     Indication: PRODUCT USED FOR UNKNOWN INDICATION
     Dosage: UNK, QD
     Route: 065
  5. WARFARIN SODIUM. [Suspect]
     Active Substance: WARFARIN SODIUM
     Indication: ANTICOAGULANT THERAPY
     Dosage: UNK, QD
     Route: 065

REACTIONS (9)
  - Hypersensitivity vasculitis [Recovering/Resolving]
  - Palpable purpura [Recovering/Resolving]
  - Drug interaction [Unknown]
  - International normalised ratio increased [Recovered/Resolved]
  - Erythema [Recovering/Resolving]
  - Extravasation blood [Recovering/Resolving]
  - Haematuria [Unknown]
  - Oedema [Recovering/Resolving]
  - Rash pruritic [Recovering/Resolving]
